FAERS Safety Report 5877929-0 (Version None)
Quarter: 2008Q3

REPORT INFORMATION
  Report Type: 
  Country: None (occurrence: None)
  Receive Date: 20080911
  Receipt Date: 20080909
  Transmission Date: 20090109
  Serious: Yes (Death)
  Sender: FDA-Public Use
  Company Number: B0531730A

PATIENT
  Age: 33 Year
  Sex: Female

DRUGS (6)
  1. FLOLAN [Suspect]
     Indication: COLLAGEN DISORDER
     Route: 042
     Dates: start: 20030919
  2. FUROSEMIDE [Concomitant]
     Indication: CARDIAC FAILURE
     Dates: end: 20030920
  3. PREDONINE [Concomitant]
     Indication: SYSTEMIC LUPUS ERYTHEMATOSUS
     Route: 048
     Dates: end: 20030920
  4. DOBUTREX [Concomitant]
     Indication: CARDIAC FAILURE
     Route: 042
     Dates: start: 20030919, end: 20030920
  5. PAZUCROSS [Concomitant]
     Indication: PNEUMONIA
     Route: 042
     Dates: start: 20030919, end: 20030920
  6. MIRACLID [Concomitant]
     Indication: PANCREATITIS
     Route: 042
     Dates: start: 20030919, end: 20030920

REACTIONS (1)
  - DEATH [None]
